FAERS Safety Report 22013009 (Version 16)
Quarter: 2024Q2

REPORT INFORMATION
  Report Type: Report from Study
  Country: US (occurrence: US)
  Receive Date: 20230220
  Receipt Date: 20240613
  Transmission Date: 20240715
  Serious: Yes (Other)
  Sender: FDA-Public Use
  Company Number: US-002147023-NVSC2023US031901

PATIENT
  Age: 51 Year
  Sex: Female

DRUGS (3)
  1. KESIMPTA [Suspect]
     Active Substance: OFATUMUMAB
     Indication: Relapsing multiple sclerosis
     Dosage: 20 MG, QMO
     Route: 058
     Dates: start: 20221226
  2. MODAFINIL [Concomitant]
     Active Substance: MODAFINIL
     Indication: Product used for unknown indication
     Dosage: UNK
     Route: 065
  3. SEMAGLUTIDE [Concomitant]
     Active Substance: SEMAGLUTIDE
     Indication: Product used for unknown indication
     Dosage: UNK
     Route: 065

REACTIONS (18)
  - Neurogenic bladder [Unknown]
  - Neurogenic cough [Unknown]
  - Neurogenic bowel [Unknown]
  - Memory impairment [Unknown]
  - Dysarthria [Unknown]
  - Diplopia [Unknown]
  - Oscillopsia [Unknown]
  - Gait disturbance [Unknown]
  - Balance disorder [Unknown]
  - Asthenia [Unknown]
  - Hypersensitivity [Unknown]
  - Decreased appetite [Unknown]
  - Weight decreased [Unknown]
  - Temperature intolerance [Unknown]
  - Fatigue [Unknown]
  - Syringe issue [Unknown]
  - Inappropriate schedule of product administration [Unknown]
  - Urinary tract infection [Recovered/Resolved]

NARRATIVE: CASE EVENT DATE: 20230209
